FAERS Safety Report 11555027 (Version 2)
Quarter: 2015Q4

REPORT INFORMATION
  Report Type: Report from Study
  Country: CA (occurrence: CA)
  Receive Date: 20150925
  Receipt Date: 20151028
  Transmission Date: 20160304
  Serious: Yes (Hospitalization, Other)
  Sender: FDA-Public Use
  Company Number: CA-JNJFOC-20150919963

PATIENT
  Age: 43 Year
  Sex: Female
  Weight: 138 kg

DRUGS (12)
  1. TYLENOL (EXTRA STRENGTH) [Concomitant]
     Dosage: WHEN NECESSARY
     Route: 048
  2. IRON SUPPLEMENT [Concomitant]
     Active Substance: IRON
     Route: 048
  3. TECTA [Concomitant]
     Active Substance: PANTOPRAZOLE MAGNESIUM
     Route: 048
  4. METFORMIN [Concomitant]
     Active Substance: METFORMIN HYDROCHLORIDE
     Route: 048
  5. CALCIUM [Concomitant]
     Active Substance: CALCIUM
     Route: 048
  6. ADVAIR HFA [Concomitant]
     Active Substance: FLUTICASONE PROPIONATE\SALMETEROL XINAFOATE
     Dosage: 2 PUFFS
     Route: 055
  7. IMURAN [Concomitant]
     Active Substance: AZATHIOPRINE
     Route: 048
  8. VENTOLIN [Concomitant]
     Active Substance: ALBUTEROL SULFATE
     Dosage: 2 PUFFS AND PRN (WHEN NECESSARY)
     Route: 055
  9. IRON INFUSIONS [Concomitant]
     Route: 065
  10. REMICADE [Suspect]
     Active Substance: INFLIXIMAB
     Indication: CROHN^S DISEASE
     Route: 042
     Dates: start: 20131128
  11. VITAMIN D [Concomitant]
     Active Substance: CHOLECALCIFEROL
     Dosage: 1000 UNITS
     Route: 048
  12. SALOFALK [Concomitant]
     Active Substance: MESALAMINE
     Dosage: 4 TABLETS AM AND PM
     Route: 048

REACTIONS (4)
  - Dyspnoea [Not Recovered/Not Resolved]
  - Device related infection [Not Recovered/Not Resolved]
  - Nasopharyngitis [Not Recovered/Not Resolved]
  - Asthma [Not Recovered/Not Resolved]

NARRATIVE: CASE EVENT DATE: 2015
